FAERS Safety Report 22062339 (Version 1)
Quarter: 2023Q1

REPORT INFORMATION
  Report Type: Spontaneous
  Country: DE (occurrence: DE)
  Receive Date: 20230305
  Receipt Date: 20230305
  Transmission Date: 20230418
  Serious: No
  Sender: FDA-Public Use
  Company Number: DE-ORGANON-O2302DEU001517

PATIENT
  Sex: Male

DRUGS (1)
  1. MOMETASONE FUROATE [Suspect]
     Active Substance: MOMETASONE FUROATE
     Dosage: UNK; 1 MG/G
     Route: 047

REACTIONS (3)
  - Wrong product administered [Unknown]
  - Incorrect route of product administration [Unknown]
  - Product confusion [Unknown]
